FAERS Safety Report 6199242-7 (Version None)
Quarter: 2009Q2

REPORT INFORMATION
  Report Type: 
  Country: None (occurrence: None)
  Receive Date: 20090522
  Receipt Date: 20090514
  Transmission Date: 20091009
  Serious: Yes (Other)
  Sender: FDA-Public Use
  Company Number: US-ELI_LILLY_AND_COMPANY-US200905003090

PATIENT
  Sex: Male

DRUGS (9)
  1. ZYPREXA [Suspect]
     Dosage: 20 MG, UNK
     Dates: start: 20060101
  2. CYMBALTA [Suspect]
     Dosage: 60 MG, UNK
     Dates: start: 20060101
  3. HYDROCODONE [Concomitant]
  4. COMPAZINE [Concomitant]
  5. DIAZEPAM [Concomitant]
  6. DIOVAN [Concomitant]
  7. PROVIGIL [Concomitant]
  8. DEXAMETHASONE 4MG TAB [Concomitant]
  9. AMENIDE [Concomitant]

REACTIONS (1)
  - GASTROINTESTINAL TUBE INSERTION [None]
